FAERS Safety Report 7284428-0 (Version None)
Quarter: 2011Q1

REPORT INFORMATION
  Report Type: 
  Country: None (occurrence: None)
  Receive Date: 20110209
  Receipt Date: 20110121
  Transmission Date: 20110831
  Serious: Yes (Other)
  Sender: FDA-Public Use
  Company Number: PHHY2011US05449

PATIENT
  Sex: Female

DRUGS (4)
  1. NEXIUM [Concomitant]
  2. KEPPRA [Concomitant]
  3. BONIVA [Concomitant]
  4. TEGRETOL-XR [Suspect]
     Route: 048

REACTIONS (4)
  - FRACTURE [None]
  - OSTEOPOROSIS [None]
  - CONVULSION [None]
  - OESOPHAGEAL DISORDER [None]
